FAERS Safety Report 8407799-8 (Version None)
Quarter: 2012Q2

REPORT INFORMATION
  Report Type: 
  Country: None (occurrence: None)
  Receive Date: 20120604
  Receipt Date: 20120601
  Transmission Date: 20120825
  Serious: Yes (Other)
  Sender: FDA-Public Use
  Company Number: GB-GLAXOSMITHKLINE-B0805226A

PATIENT
  Age: 57 Year
  Sex: Female
  Weight: 95 kg

DRUGS (5)
  1. VOLUMATIC [Concomitant]
     Dates: start: 20110921
  2. FLUTICASONE FUROATE [Suspect]
     Dates: start: 20120517
  3. VENTOLIN [Concomitant]
     Dates: start: 20120214
  4. NAPROXEN [Concomitant]
     Dates: start: 20120214, end: 20120410
  5. QVAR 40 [Concomitant]
     Dates: start: 20120214, end: 20120410

REACTIONS (4)
  - EPISTAXIS [None]
  - SWELLING FACE [None]
  - PARAESTHESIA ORAL [None]
  - SOMNOLENCE [None]
